FAERS Safety Report 5152442-7 (Version None)
Quarter: 2006Q4

REPORT INFORMATION
  Report Type: 
  Country: None (occurrence: None)
  Receive Date: 20061116
  Receipt Date: 20061107
  Transmission Date: 20070319
  Serious: Yes (Hospitalization)
  Sender: FDA-Public Use
  Company Number: US-KINGPHARMUSA00001-K200601436

PATIENT
  Sex: Male

DRUGS (1)
  1. PRALIDOXIME CHLORIDE AUTO-INJECTOR [Suspect]
     Dosage: UNK, SINGLE
     Dates: start: 20061021, end: 20061021

REACTIONS (1)
  - ACCIDENTAL EXPOSURE [None]
